FAERS Safety Report 6125705-6 (Version None)
Quarter: 2009Q1

REPORT INFORMATION
  Report Type: 
  Country: None (occurrence: None)
  Receive Date: 20090319
  Receipt Date: 20090319
  Transmission Date: 20090719
  Serious: Yes (Other)
  Sender: FDA-Public Use
  Company Number: None

PATIENT
  Age: 69 Year
  Sex: Male
  Weight: 74.8435 kg

DRUGS (2)
  1. CIPROFLOXACIN HCL [Suspect]
     Indication: PROSTATITIS
     Dosage: ? 1 DAILY PO
     Route: 048
  2. LEVAQUIN [Suspect]
     Indication: PROSTATITIS
     Dosage: 750 MG 1 DAILY PO WEEKS
     Route: 048

REACTIONS (3)
  - ARRHYTHMIA [None]
  - DRUG TOXICITY [None]
  - TENDONITIS [None]
